FAERS Safety Report 5941371-4 (Version None)
Quarter: 2008Q4

REPORT INFORMATION
  Report Type: 
  Country: None (occurrence: None)
  Receive Date: 20081105
  Receipt Date: 20081031
  Transmission Date: 20090506
  Serious: Yes (Death)
  Sender: FDA-Public Use
  Company Number: JP-JNJFOC-20081100560

PATIENT
  Age: 74 Year
  Sex: Female

DRUGS (1)
  1. ITRACONAZOLE [Suspect]
     Indication: INFECTION PROPHYLAXIS
     Route: 041

REACTIONS (2)
  - CONDITION AGGRAVATED [None]
  - DEATH [None]
